FAERS Safety Report 7076550-9 (Version None)
Quarter: 2010Q4

REPORT INFORMATION
  Report Type: 
  Country: None (occurrence: None)
  Receive Date: 20101101
  Receipt Date: 20101020
  Transmission Date: 20110411
  Serious: Yes (Other)
  Sender: FDA-Public Use
  Company Number: US-PFIZER INC-2010133620

PATIENT
  Sex: Female
  Weight: 90.703 kg

DRUGS (3)
  1. GEODON [Suspect]
     Dosage: 160 MG, 1X/DAY
     Route: 048
     Dates: start: 20050101
  2. ATIVAN [Concomitant]
     Indication: DEPRESSION
     Dosage: UNK
  3. TRAZODONE [Concomitant]
     Dosage: UNK

REACTIONS (19)
  - ABASIA [None]
  - ACTIVITIES OF DAILY LIVING IMPAIRED [None]
  - CHEST PAIN [None]
  - DYSPHAGIA [None]
  - DYSPNOEA [None]
  - DYSSTASIA [None]
  - FALL [None]
  - FEELING ABNORMAL [None]
  - HEADACHE [None]
  - MANIA [None]
  - MUSCLE TIGHTNESS [None]
  - NERVOUS SYSTEM DISORDER [None]
  - NEUROGENIC BLADDER [None]
  - PAIN [None]
  - PSYCHOTIC DISORDER [None]
  - THIRST DECREASED [None]
  - TOOTHACHE [None]
  - VISUAL IMPAIRMENT [None]
  - WEIGHT DECREASED [None]
